FAERS Safety Report 7074470-7 (Version None)
Quarter: 2010Q4

REPORT INFORMATION
  Report Type: 
  Country: None (occurrence: None)
  Receive Date: 20101029
  Receipt Date: 20101019
  Transmission Date: 20110411
  Serious: Yes (Other)
  Sender: FDA-Public Use
  Company Number: US-US-EMD SERONO, INC.-7020774

PATIENT
  Sex: Female
  Weight: 102 kg

DRUGS (3)
  1. REBIF [Suspect]
     Indication: MULTIPLE SCLEROSIS
     Route: 058
     Dates: start: 20040607
  2. NAPROSYN [Concomitant]
     Indication: SPINAL OSTEOARTHRITIS
  3. LISINOPRIL [Concomitant]
     Indication: BLOOD PRESSURE

REACTIONS (3)
  - DRUG PRESCRIBING ERROR [None]
  - INTRAOCULAR PRESSURE INCREASED [None]
  - SARCOIDOSIS [None]
